FAERS Safety Report 23743567 (Version 1)
Quarter: 2024Q2

REPORT INFORMATION
  Report Type: Spontaneous
  Country: FR (occurrence: FR)
  Receive Date: 20240415
  Receipt Date: 20240415
  Transmission Date: 20240716
  Serious: Yes (Hospitalization)
  Sender: FDA-Public Use
  Company Number: None

PATIENT
  Age: 79 Year
  Sex: Male
  Weight: 82 kg

DRUGS (4)
  1. GONADORELIN [Suspect]
     Active Substance: GONADORELIN
     Indication: Prostate cancer metastatic
     Dosage: 1 INJECTION TOUS LES 3 MOIS
     Route: 030
     Dates: start: 20230524
  2. PREDNISONE [Suspect]
     Active Substance: PREDNISONE
     Indication: Prostate cancer metastatic
     Dosage: 5.000MG QD
     Route: 048
     Dates: start: 20230622
  3. XGEVA [Suspect]
     Active Substance: DENOSUMAB
     Indication: Prostate cancer metastatic
     Dosage: 120.000MG
     Route: 058
     Dates: start: 202308
  4. ZYTIGA [Suspect]
     Active Substance: ABIRATERONE ACETATE
     Indication: Prostate cancer metastatic
     Dosage: 2 FOIS 500MG PAR JOUR
     Route: 048
     Dates: start: 20230622, end: 20240106

REACTIONS (1)
  - Cardiac failure [Recovering/Resolving]

NARRATIVE: CASE EVENT DATE: 20240101
